FAERS Safety Report 9820035 (Version 1)
Quarter: 2014Q1

REPORT INFORMATION
  Report Type: Spontaneous
  Country: US (occurrence: None)
  Receive Date: 20140113
  Receipt Date: 20140113
  Transmission Date: 20141002
  Serious: Yes (Disabling, Other)
  Sender: FDA-Public Use
  Company Number: None

PATIENT
  Sex: 0

DRUGS (1)
  1. SUBOXONE [Suspect]

REACTIONS (5)
  - Drug ineffective [None]
  - Product substitution issue [None]
  - Drug withdrawal syndrome [None]
  - Product dosage form issue [None]
  - Suicidal ideation [None]
